FAERS Safety Report 21395294 (Version 4)
Quarter: 2023Q1

REPORT INFORMATION
  Report Type: Spontaneous
  Country: DE (occurrence: DE)
  Receive Date: 20220930
  Receipt Date: 20230304
  Transmission Date: 20230418
  Serious: Yes (Other)
  Sender: FDA-Public Use
  Company Number: DE-TAKEDA-2022TUS068103

PATIENT
  Sex: Female
  Weight: 55 kg

DRUGS (5)
  1. LISDEXAMFETAMINE DIMESYLATE [Suspect]
     Active Substance: LISDEXAMFETAMINE DIMESYLATE
     Indication: Attention deficit hyperactivity disorder
     Dosage: UNK
     Route: 065
  2. LISDEXAMFETAMINE DIMESYLATE [Suspect]
     Active Substance: LISDEXAMFETAMINE DIMESYLATE
     Dosage: 50 MILLIGRAM, QD
     Route: 065
     Dates: start: 2016, end: 202106
  3. LISDEXAMFETAMINE DIMESYLATE [Suspect]
     Active Substance: LISDEXAMFETAMINE DIMESYLATE
     Dosage: 30 MILLIGRAM, BID
     Route: 065
     Dates: start: 202203
  4. NICOTINE [Suspect]
     Active Substance: NICOTINE
     Indication: Product used for unknown indication
     Dosage: UNK
     Route: 065
  5. PROGESTERONE [Concomitant]
     Active Substance: PROGESTERONE
     Dosage: UNK
     Route: 065

REACTIONS (10)
  - Nicotine dependence [Unknown]
  - Feeling of relaxation [Unknown]
  - Tobacco user [Unknown]
  - Feeling abnormal [Unknown]
  - Asthenia [Unknown]
  - Appetite disorder [Unknown]
  - Drug ineffective [Unknown]
  - Fatigue [Unknown]
  - Dry mouth [Unknown]
  - Heart rate increased [Unknown]
